FAERS Safety Report 11693579 (Version 3)
Quarter: 2016Q1

REPORT INFORMATION
  Report Type: Spontaneous
  Country: US (occurrence: US)
  Receive Date: 20151103
  Receipt Date: 20160104
  Transmission Date: 20160525
  Serious: No
  Sender: FDA-Public Use
  Company Number: US-PFIZER INC-2015360887

PATIENT
  Sex: Male

DRUGS (1)
  1. LYRICA [Suspect]
     Active Substance: PREGABALIN
     Indication: DIABETIC NEUROPATHY
     Dosage: 300 MG, 2X/DAY

REACTIONS (5)
  - Pain [Unknown]
  - Drug effect incomplete [Unknown]
  - Product quality issue [Unknown]
  - Overdose [Unknown]
  - Incorrect product storage [Unknown]
